FAERS Safety Report 9878782 (Version 3)
Quarter: 2014Q2

REPORT INFORMATION
  Report Type: Spontaneous
  Country: US (occurrence: US)
  Receive Date: 20140206
  Receipt Date: 20140402
  Transmission Date: 20141212
  Serious: Yes (Death, Life-Threatening, Hospitalization, Disabling, Other)
  Sender: FDA-Public Use
  Company Number: US-GLAXOSMITHKLINE-A1059739A

PATIENT
  Age: 35 Year
  Sex: Female
  Weight: 77.3 kg

DRUGS (10)
  1. TYKERB [Suspect]
     Indication: BREAST CANCER
     Dosage: 250MG UNKNOWN
     Route: 048
     Dates: start: 20131015, end: 20140101
  2. XGEVA [Suspect]
     Indication: PRODUCT USED FOR UNKNOWN INDICATION
     Route: 065
     Dates: start: 201309
  3. ABRAXANE [Suspect]
     Indication: BREAST CANCER METASTATIC
     Route: 065
  4. NAVELBINE [Suspect]
     Indication: PRODUCT USED FOR UNKNOWN INDICATION
     Route: 065
  5. HERCEPTIN [Suspect]
     Indication: BREAST CANCER
     Dosage: 440MG WEEKLY
     Route: 042
     Dates: start: 20131105
  6. KADCYLA [Suspect]
     Indication: PRODUCT USED FOR UNKNOWN INDICATION
     Route: 065
     Dates: start: 201309
  7. COLACE [Concomitant]
  8. DEXAMETHASONE [Concomitant]
  9. NORCO [Concomitant]
  10. PRILOSEC [Concomitant]

REACTIONS (14)
  - Breast cancer metastatic [Fatal]
  - Ascites [Unknown]
  - Metastases to central nervous system [Unknown]
  - Deafness unilateral [Unknown]
  - Hydrocephalus [Unknown]
  - Vertigo [Unknown]
  - Nausea [Unknown]
  - Dizziness [Unknown]
  - Balance disorder [Unknown]
  - Muscular weakness [Unknown]
  - Hypoaesthesia [Unknown]
  - Hepatic enzyme increased [Unknown]
  - Abdominal pain [Unknown]
  - Confusional state [Unknown]
